FAERS Safety Report 18108888 (Version 7)
Quarter: 2021Q3

REPORT INFORMATION
  Report Type: Report from Study
  Country: BR (occurrence: BR)
  Receive Date: 20200804
  Receipt Date: 20210730
  Transmission Date: 20211014
  Serious: Yes (Hospitalization)
  Sender: FDA-Public Use
  Company Number: BR-ROCHE-2649255

PATIENT
  Age: 54 Year
  Sex: Female
  Weight: 53 kg

DRUGS (24)
  1. MAGNESIUM SULFATE. [Concomitant]
     Active Substance: MAGNESIUM SULFATE
     Route: 048
     Dates: start: 20200103, end: 20210722
  2. OMEPRAZOLE. [Concomitant]
     Active Substance: OMEPRAZOLE
     Indication: COLITIS
     Route: 048
     Dates: start: 20191220
  3. METHYLPREDNISOLONE. [Concomitant]
     Active Substance: METHYLPREDNISOLONE
     Indication: COLITIS
     Route: 042
     Dates: start: 20210524, end: 20210526
  4. PREDNISONE. [Concomitant]
     Active Substance: PREDNISONE
     Route: 048
     Dates: start: 20210701, end: 20210721
  5. PERIDAL [DOMPERIDONE] [Concomitant]
     Indication: GASTROINTESTINAL PAIN
     Route: 048
     Dates: start: 20200220
  6. METHYLPREDNISOLONE. [Concomitant]
     Active Substance: METHYLPREDNISOLONE
     Route: 048
     Dates: start: 20210531, end: 20210601
  7. ONDANSETRON [Concomitant]
     Active Substance: ONDANSETRON
     Indication: COLITIS
     Route: 048
     Dates: start: 20210524, end: 20210603
  8. PREDNISONE. [Concomitant]
     Active Substance: PREDNISONE
     Route: 048
     Dates: start: 20200425
  9. LUFTAL [SIMETICONE] [Concomitant]
     Indication: FLATULENCE
     Route: 048
     Dates: start: 20191220
  10. PREDNISONE. [Concomitant]
     Active Substance: PREDNISONE
     Route: 048
     Dates: start: 20210722
  11. SLOW K [Concomitant]
     Active Substance: POTASSIUM CHLORIDE
     Indication: HYPOKALAEMIA
     Route: 048
     Dates: start: 20200303
  12. PREDNISONE. [Concomitant]
     Active Substance: PREDNISONE
     Indication: COLITIS
     Route: 048
     Dates: start: 20191219
  13. PREDNISONE. [Concomitant]
     Active Substance: PREDNISONE
     Route: 048
     Dates: start: 20210602, end: 20210630
  14. OMEPRAZOLE. [Concomitant]
     Active Substance: OMEPRAZOLE
     Route: 048
     Dates: start: 20210524
  15. PREDNISONE. [Concomitant]
     Active Substance: PREDNISONE
     Route: 048
     Dates: start: 20210527, end: 20210530
  16. MYCOPHENOLATE [Concomitant]
     Active Substance: MYCOPHENOLIC ACID
     Indication: COLITIS
     Route: 048
     Dates: start: 20210601
  17. ROCEFIN [Concomitant]
     Active Substance: CEFTRIAXONE SODIUM
     Indication: ABDOMINAL INFECTION
     Route: 042
     Dates: start: 20210524, end: 20210531
  18. ATEZOLIZUMAB. [Suspect]
     Active Substance: ATEZOLIZUMAB
     Indication: RENAL CELL CARCINOMA
     Dosage: ON 16/SEP/2019, AT 12:55, SHE RECEIVED MOST RECENT DOSE OF ATEZOLIZUMAB (1200 MG) PRIOR TO ONSET OF
     Route: 041
     Dates: start: 20181026
  19. DIPYRONE [Concomitant]
     Active Substance: DIPYRONE
     Indication: PNEUMONIA
     Route: 048
     Dates: start: 20190821
  20. DOMPERIDONE [Concomitant]
     Active Substance: DOMPERIDONE
     Indication: NAUSEA
     Route: 048
     Dates: start: 20191220
  21. BUSCOPAN [Concomitant]
     Active Substance: BUTYLSCOPOLAMINE BROMIDE
     Indication: COLITIS
     Route: 048
     Dates: start: 20210526
  22. DRAMIN [Concomitant]
     Active Substance: DIMENHYDRINATE
     Indication: COLITIS
     Route: 048
     Dates: start: 20210524
  23. MYCOPHENOLATE [Concomitant]
     Active Substance: MYCOPHENOLIC ACID
     Route: 048
     Dates: start: 20210602
  24. INFLIXIMAB [Concomitant]
     Active Substance: INFLIXIMAB
     Indication: COLITIS

REACTIONS (2)
  - Subarachnoid haemorrhage [Recovered/Resolved]
  - Renal failure [Recovered/Resolved]

NARRATIVE: CASE EVENT DATE: 20200723
